FAERS Safety Report 15209756 (Version 9)
Quarter: 2019Q3

REPORT INFORMATION
  Report Type: Report from Study
  Country: JP (occurrence: JP)
  Receive Date: 20180727
  Receipt Date: 20190711
  Transmission Date: 20191004
  Serious: Yes (Death, Hospitalization)
  Sender: FDA-Public Use
  Company Number: JP-PFIZER INC-2018200940

PATIENT
  Age: 6 Year
  Sex: Male
  Weight: 16.6 kg

DRUGS (47)
  1. BESPONSA [Suspect]
     Active Substance: INOTUZUMAB OZOGAMICIN
     Dosage: 0.8 MG/M2, 1X/DAY
     Route: 041
     Dates: start: 20180531, end: 20180531
  2. BESPONSA [Suspect]
     Active Substance: INOTUZUMAB OZOGAMICIN
     Dosage: 0.5 MG/M2, 1X/DAY
     Route: 041
     Dates: start: 20180716, end: 20180716
  3. DALTEPARIN NA [Concomitant]
     Active Substance: DALTEPARIN SODIUM
     Dosage: UNK
     Route: 042
     Dates: start: 20180427
  4. OTSUKA NORMAL SALINE [Concomitant]
     Dosage: UNK
     Dates: start: 20180427
  5. SOLU-CORTEF [Concomitant]
     Active Substance: HYDROCORTISONE SODIUM SUCCINATE
     Dosage: UNK
     Dates: start: 20180427
  6. GRANISETRON [Concomitant]
     Active Substance: GRANISETRON
     Dosage: UNK
     Dates: start: 20180427
  7. KETALAR [Concomitant]
     Active Substance: KETAMINE HYDROCHLORIDE
     Dosage: UNK
     Dates: start: 20180523
  8. TEICOPLANIN [Concomitant]
     Active Substance: TEICOPLANIN
     Dosage: UNK
     Route: 041
     Dates: start: 20180713
  9. HIRUDOID SOFT [Concomitant]
     Active Substance: GLYCOSAMINOGLYCANS
     Dosage: UNK
     Route: 061
     Dates: start: 20180506
  10. FLUCONAZOLE. [Concomitant]
     Active Substance: FLUCONAZOLE
     Dosage: UNK
     Route: 048
     Dates: start: 20180629
  11. MEROPENEM. [Concomitant]
     Active Substance: MEROPENEM
     Dosage: UNK
     Dates: start: 20180524
  12. ELNEOPA NF NO.1 [Concomitant]
     Dosage: UNK
     Dates: start: 20180529
  13. URONASE [Concomitant]
     Active Substance: UROKINASE
     Dosage: UNK
     Dates: start: 20180629
  14. ACUATIM [Concomitant]
     Active Substance: NADIFLOXACIN
     Dosage: UNK
     Route: 061
     Dates: start: 20180629
  15. BESPONSA [Suspect]
     Active Substance: INOTUZUMAB OZOGAMICIN
     Dosage: 0.5 MG/M2, 1X/DAY
     Route: 041
     Dates: start: 20180511, end: 20180511
  16. BESPONSA [Suspect]
     Active Substance: INOTUZUMAB OZOGAMICIN
     Dosage: 0.5 MG/M2, 1X/DAY
     Route: 041
     Dates: start: 20180607, end: 20180607
  17. ACELIO [Concomitant]
     Active Substance: ACETAMINOPHEN
     Dosage: UNK
     Route: 042
     Dates: start: 20180427
  18. FUNGUARD [Concomitant]
     Active Substance: MICAFUNGIN SODIUM
     Dosage: UNK
     Route: 041
     Dates: start: 20180427
  19. ALLOPURINOL. [Concomitant]
     Active Substance: ALLOPURINOL
     Dosage: UNK
     Route: 048
     Dates: start: 20180427
  20. BESPONSA [Suspect]
     Active Substance: INOTUZUMAB OZOGAMICIN
     Indication: ACUTE LYMPHOCYTIC LEUKAEMIA RECURRENT
     Dosage: 0.8 MG/M2, 1X/DAY
     Route: 041
     Dates: start: 20180427, end: 20180427
  21. ATARAX-P [HYDROXYZINE EMBONATE] [Concomitant]
     Dosage: UNK
     Dates: start: 20180427
  22. NEOPHAGEN [CYSTEINE;GLYCINE;GLYCYRRHIZIC ACID] [Concomitant]
     Dosage: UNK
     Dates: start: 20180427
  23. ALDACTONE-A [Concomitant]
     Active Substance: SPIRONOLACTONE
     Dosage: UNK
     Route: 048
     Dates: start: 20180522
  24. ALESION [Concomitant]
     Active Substance: EPINASTINE HYDROCHLORIDE
     Dosage: UNK
     Route: 048
     Dates: start: 20180522
  25. EURAX H [Concomitant]
     Dosage: UNK
     Route: 061
     Dates: start: 20180526
  26. MIYA-BM [Concomitant]
     Active Substance: CLOSTRIDIUM BUTYRICUM SPORES STRAIN M-55
     Dosage: UNK
     Route: 048
     Dates: start: 20180529
  27. RESTAMIN KOWA [Concomitant]
     Dosage: UNK
     Dates: start: 20180609
  28. GLYCYRON [GLYCYRRHIZIC ACID, AMMONIUM SALT] [Concomitant]
     Dosage: UNK
     Route: 048
     Dates: start: 20180628
  29. BESPONSA [Suspect]
     Active Substance: INOTUZUMAB OZOGAMICIN
     Dosage: 0.5 MG/M2, 1X/DAY
     Route: 041
     Dates: start: 20180614, end: 20180614
  30. NONTHRON [Concomitant]
     Dosage: UNK
     Dates: start: 20180427
  31. RINDERON VG [Concomitant]
     Active Substance: BETAMETHASONE VALERATE\GENTAMICIN SULFATE
     Dosage: UNK
     Route: 061
     Dates: start: 20180603
  32. BESPONSA [Suspect]
     Active Substance: INOTUZUMAB OZOGAMICIN
     Dosage: 0.5 MG/M2, 1X/DAY
     Route: 041
     Dates: start: 20180504, end: 20180504
  33. PRIMPERAN [Concomitant]
     Active Substance: METOCLOPRAMIDE HYDROCHLORIDE
     Dosage: UNK
     Dates: start: 20180428
  34. FUROSEMIDE. [Concomitant]
     Active Substance: FUROSEMIDE
     Dosage: UNK
     Dates: start: 20180428
  35. SODIUM CHLORIDE. [Concomitant]
     Active Substance: SODIUM CHLORIDE
     Dosage: UNK
     Dates: start: 20180716
  36. ADSORBIN [Concomitant]
     Active Substance: ALUMINUM SILICATE
     Dosage: UNK
     Route: 048
     Dates: start: 20180429
  37. BACTRAMIN [Concomitant]
     Active Substance: SULFAMETHOXAZOLE\TRIMETHOPRIM
     Dosage: UNK
     Route: 048
     Dates: start: 20180504
  38. LASIX [Concomitant]
     Active Substance: FUROSEMIDE
     Dosage: UNK
     Route: 048
     Dates: start: 20180522
  39. BESPONSA [Suspect]
     Active Substance: INOTUZUMAB OZOGAMICIN
     Dosage: 0.8 MG/M2, 1X/DAY
     Route: 041
     Dates: start: 20180709, end: 20180709
  40. RASURITEK [Concomitant]
     Active Substance: RASBURICASE
     Dosage: UNK
     Route: 041
     Dates: start: 20180427
  41. FIRSTCIN [Concomitant]
     Active Substance: CEFOZOPRAN HYDROCHLORIDE
     Dosage: UNK
     Dates: start: 20180507
  42. PROPETO [Concomitant]
     Active Substance: PETROLATUM
     Dosage: UNK
     Route: 061
     Dates: start: 20180506
  43. KINDAVATE [Concomitant]
     Active Substance: CLOBETASONE BUTYRATE
     Dosage: UNK
     Route: 061
     Dates: start: 20180528
  44. AZUNOL GARGLE LIQUID [Concomitant]
     Dosage: UNK
     Dates: start: 20180608
  45. URSO [Concomitant]
     Active Substance: URSODIOL
     Dosage: 50 MG/G, DAILY
     Route: 048
     Dates: start: 20180427
  46. BIOFERMIN [LACTOMIN] [Concomitant]
     Dosage: UNK
     Route: 048
     Dates: start: 20180503
  47. HIRUDOID [Concomitant]
     Active Substance: GLYCOSAMINOGLYCANS
     Dosage: UNK
     Route: 061
     Dates: start: 20180506

REACTIONS (2)
  - Nausea [Unknown]
  - Febrile neutropenia [Recovered/Resolved]

NARRATIVE: CASE EVENT DATE: 20180507
